FAERS Safety Report 13689236 (Version 1)
Quarter: 2017Q2

REPORT INFORMATION
  Report Type: Spontaneous
  Country: FR (occurrence: FR)
  Receive Date: 20170626
  Receipt Date: 20170626
  Transmission Date: 20170830
  Serious: Yes (Hospitalization)
  Sender: FDA-Public Use
  Company Number: FR-PFIZER INC-2017276165

PATIENT
  Age: 77 Year
  Sex: Female

DRUGS (1)
  1. CORDARONE [Suspect]
     Active Substance: AMIODARONE HYDROCHLORIDE
     Indication: TACHYCARDIA
     Dosage: 200 MG, DAILY
     Route: 048
     Dates: start: 20170406, end: 20170522

REACTIONS (3)
  - Inflammation [Recovering/Resolving]
  - Oropharyngeal pain [Recovered/Resolved]
  - Hyperthermia [Recovering/Resolving]

NARRATIVE: CASE EVENT DATE: 20170413
